FAERS Safety Report 5385169-7 (Version None)
Quarter: 2007Q3

REPORT INFORMATION
  Report Type: 
  Country: None (occurrence: None)
  Receive Date: 20070710
  Receipt Date: 20070417
  Transmission Date: 20080115
  Serious: Yes (Other)
  Sender: FDA-Public Use
  Company Number: US-2007-011907

PATIENT
  Age: 22 Year
  Sex: Female

DRUGS (2)
  1. YASMIN [Suspect]
     Dosage: ORAL
     Route: 048
  2. ACCUTANE [Concomitant]

REACTIONS (1)
  - PULMONARY EMBOLISM [None]
